FAERS Safety Report 6150018-6 (Version None)
Quarter: 2009Q2

REPORT INFORMATION
  Report Type: 
  Country: None (occurrence: None)
  Receive Date: 20090409
  Receipt Date: 20090407
  Transmission Date: 20091009
  Serious: Yes (Hospitalization)
  Sender: FDA-Public Use
  Company Number: B0568171A

PATIENT
  Sex: Female

DRUGS (2)
  1. RELENZA [Suspect]
     Indication: DRUG USE FOR UNKNOWN INDICATION
     Dosage: 10MG TWICE PER DAY
     Route: 055
     Dates: start: 20090313, end: 20090317
  2. CALONAL [Concomitant]
     Dosage: 200MG PER DAY
     Route: 048
     Dates: start: 20090313

REACTIONS (2)
  - EPILEPSY [None]
  - FALL [None]
